FAERS Safety Report 9548621 (Version 1)
Quarter: 2013Q2

REPORT INFORMATION
  Report Type: Spontaneous
  Country: US (occurrence: None)
  Receive Date: 20130627
  Receipt Date: 20130627
  Transmission Date: 20140414
  Serious: Yes (Other)
  Sender: FDA-Public Use
  Company Number: 1000043397

PATIENT
  Age: 48 Year
  Sex: Female

DRUGS (2)
  1. LINZESS [Suspect]
     Indication: IRRITABLE BOWEL SYNDROME
     Route: 048
     Dates: start: 20130221, end: 20130227
  2. HYDROCODONE (HYDROCODONE) (HYDROCODONE) [Concomitant]

REACTIONS (3)
  - Nausea [None]
  - Diarrhoea [None]
  - Hypoaesthesia [None]
